FAERS Safety Report 13200834 (Version 1)
Quarter: 2017Q1

REPORT INFORMATION
  Report Type: Report from Study
  Country: US (occurrence: US)
  Receive Date: 20170208
  Receipt Date: 20170208
  Transmission Date: 20170428
  Serious: Yes (Other)
  Sender: FDA-Public Use
  Company Number: US-MYLANLABS-2017M1007054

PATIENT

DRUGS (2)
  1. SUNITINIB [Suspect]
     Active Substance: SUNITINIB
     Indication: OESOPHAGEAL CANCER METASTATIC
     Route: 048
  2. CAPECITABINE. [Suspect]
     Active Substance: CAPECITABINE
     Indication: OESOPHAGEAL CANCER METASTATIC
     Route: 048

REACTIONS (5)
  - Dehydration [Unknown]
  - Anastomotic leak [Unknown]
  - Gastritis [Unknown]
  - Decreased appetite [Unknown]
  - Muscular weakness [Unknown]
